FAERS Safety Report 6656313-6 (Version None)
Quarter: 2010Q1

REPORT INFORMATION
  Report Type: 
  Country: None (occurrence: None)
  Receive Date: 20100329
  Receipt Date: 20100319
  Transmission Date: 20100710
  Serious: Yes (Hospitalization)
  Sender: FDA-Public Use
  Company Number: GXKR2010GB03309

PATIENT
  Age: 37 Year
  Sex: Female

DRUGS (3)
  1. WARFARIN (NGX) [Suspect]
     Indication: MITRAL VALVE REPLACEMENT
     Route: 065
  2. VACCINIUM MACROCARPON [Interacting]
  3. POMEGRANATE [Interacting]
     Dosage: 3 L/WEEK
     Route: 048

REACTIONS (3)
  - DRUG INTERACTION [None]
  - MUSCLE HAEMORRHAGE [None]
  - SWELLING [None]
